FAERS Safety Report 8905779 (Version 6)
Quarter: 2014Q4

REPORT INFORMATION
  Report Type: Spontaneous
  Country: US (occurrence: US)
  Receive Date: 20121113
  Receipt Date: 20141215
  Transmission Date: 20150529
  Serious: Yes (Hospitalization, Disabling, Other)
  Sender: FDA-Public Use
  Company Number: US-009507513-1211USA002197

PATIENT
  Sex: Female
  Weight: 56.24 kg

DRUGS (3)
  1. BONIVA [Suspect]
     Active Substance: IBANDRONATE SODIUM
     Indication: OSTEOPOROSIS
     Dosage: 150 MG, QM
     Route: 048
     Dates: start: 200508, end: 201003
  2. FOSAMAX [Suspect]
     Active Substance: ALENDRONATE SODIUM
     Indication: OSTEOPOROSIS
     Dosage: 70 MG, QW
     Route: 048
     Dates: start: 2001, end: 200508
  3. ACTONEL [Suspect]
     Active Substance: RISEDRONATE SODIUM
     Indication: OSTEOPOROSIS
     Dosage: 150 MG, UNK
     Route: 048
     Dates: start: 20100318, end: 201102

REACTIONS (42)
  - Femur fracture [Unknown]
  - Medical device removal [Unknown]
  - Tonsillectomy [Unknown]
  - Haemorrhagic anaemia [Unknown]
  - Fall [Unknown]
  - Fracture nonunion [Unknown]
  - Laryngitis [Not Recovered/Not Resolved]
  - Intramedullary rod insertion [Unknown]
  - Open reduction of fracture [Unknown]
  - Wrist surgery [Unknown]
  - Surgical failure [Unknown]
  - Fibula fracture [Recovering/Resolving]
  - Fall [Unknown]
  - Temporomandibular joint syndrome [Unknown]
  - Medical device removal [Unknown]
  - Soft tissue mass [Unknown]
  - Gastrooesophageal reflux disease [Unknown]
  - Femur fracture [Unknown]
  - Hypercholesterolaemia [Unknown]
  - Device failure [Unknown]
  - Depression [Unknown]
  - Limb operation [Unknown]
  - Urinary retention [Unknown]
  - Fibrosis [Unknown]
  - Endotracheal intubation complication [Unknown]
  - Device failure [Unknown]
  - Anxiety [Unknown]
  - Foot operation [Unknown]
  - Nasal polyps [Unknown]
  - Medical device removal [Unknown]
  - Granuloma [Not Recovered/Not Resolved]
  - Mucosal ulceration [Not Recovered/Not Resolved]
  - Pharyngeal abscess [Recovered/Resolved]
  - Appendicectomy [Unknown]
  - Atelectasis [Unknown]
  - Urine ketone body [Unknown]
  - Pain in extremity [Unknown]
  - Oedema peripheral [Unknown]
  - Intramedullary rod insertion [Unknown]
  - Femur fracture [Unknown]
  - Tooth abscess [Unknown]
  - Osteoarthritis [Unknown]

NARRATIVE: CASE EVENT DATE: 2004
